FAERS Safety Report 12314130 (Version 1)
Quarter: 2016Q2

REPORT INFORMATION
  Report Type: Spontaneous
  Country: US (occurrence: None)
  Receive Date: 20160427
  Receipt Date: 20160427
  Transmission Date: 20160815
  Serious: No
  Sender: FDA-Public Use
  Company Number: None

PATIENT
  Age: 57 Year
  Sex: Female

DRUGS (1)
  1. REBIF REBIDOSE [Suspect]
     Active Substance: INTERFERON BETA-1A

REACTIONS (5)
  - Condition aggravated [None]
  - Fatigue [None]
  - Arthralgia [None]
  - Adverse event [None]
  - Insomnia [None]

NARRATIVE: CASE EVENT DATE: 20160426
